FAERS Safety Report 21672001 (Version 2)
Quarter: 2024Q2

REPORT INFORMATION
  Report Type: Spontaneous
  Country: DE (occurrence: DE)
  Receive Date: 20221202
  Receipt Date: 20240403
  Transmission Date: 20240715
  Serious: Yes (Hospitalization, Other)
  Sender: FDA-Public Use
  Company Number: DE-ALKEM LABORATORIES LIMITED-DE-ALKEM-2022-13516

PATIENT
  Age: 15 Year
  Sex: Male

DRUGS (12)
  1. LACOSAMIDE [Suspect]
     Active Substance: LACOSAMIDE
     Indication: Epilepsy
     Dosage: 175 MILLIGRAM, QD ( EVERY 1 DAY)
     Route: 065
  2. CLOBAZAM [Suspect]
     Active Substance: CLOBAZAM
     Indication: Epilepsy
     Dosage: UNK
     Route: 065
  3. LAMOTRIGINE [Suspect]
     Active Substance: LAMOTRIGINE
     Indication: Epilepsy
     Dosage: UNK
     Route: 065
  4. LAMOTRIGINE [Suspect]
     Active Substance: LAMOTRIGINE
     Dosage: 100 MILLIGRAM
     Route: 065
  5. TOPIRAMATE [Suspect]
     Active Substance: TOPIRAMATE
     Indication: Epilepsy
     Dosage: UNK
     Route: 065
  6. TOPIRAMATE [Suspect]
     Active Substance: TOPIRAMATE
     Dosage: 100 MILLIGRAM
     Route: 065
  7. LEVETIRACETAM [Suspect]
     Active Substance: LEVETIRACETAM
     Indication: Epilepsy
     Dosage: 1125 MILLIGRAM, QD (EVERY 1 DAY)
     Route: 065
  8. OXCARBAZEPINE [Suspect]
     Active Substance: OXCARBAZEPINE
     Indication: Epilepsy
     Dosage: UNK
     Route: 065
  9. PERAMPANEL [Suspect]
     Active Substance: PERAMPANEL
     Indication: Epilepsy
     Dosage: UNK
     Route: 065
  10. SULTHIAME [Suspect]
     Active Substance: SULTHIAME
     Indication: Epilepsy
     Dosage: UNK
     Route: 065
  11. VALPROATE [Suspect]
     Active Substance: VALPROIC ACID
     Indication: Epilepsy
     Dosage: UNK
     Route: 065
  12. VALPROATE [Suspect]
     Active Substance: VALPROIC ACID
     Dosage: 600 MILLIGRAM
     Route: 065

REACTIONS (6)
  - Epilepsy [Unknown]
  - Thrombocytopenia [Recovered/Resolved]
  - Leukopenia [Recovered/Resolved]
  - Drug ineffective [Unknown]
  - Aggression [Unknown]
  - Off label use [Unknown]
